FAERS Safety Report 23260346 (Version 1)
Quarter: 2023Q4

REPORT INFORMATION
  Report Type: Spontaneous
  Country: US (occurrence: US)
  Receive Date: 20231204
  Receipt Date: 20231204
  Transmission Date: 20240109
  Serious: Yes (Other)
  Sender: FDA-Public Use
  Company Number: US-ABBVIE-5513461

PATIENT
  Sex: Female
  Weight: 96.161 kg

DRUGS (1)
  1. KADIAN [Suspect]
     Active Substance: MORPHINE SULFATE
     Indication: Hysterectomy
     Dosage: 10 MILLIGRAM EXTENDED RELEASE
     Route: 048

REACTIONS (1)
  - Loss of consciousness [Recovered/Resolved]
